FAERS Safety Report 7120760-9 (Version None)
Quarter: 2010Q4

REPORT INFORMATION
  Report Type: 
  Country: None (occurrence: None)
  Receive Date: 20101124
  Receipt Date: 20101119
  Transmission Date: 20110411
  Serious: Yes (Other)
  Sender: FDA-Public Use
  Company Number: US-BAYER-201041626NA

PATIENT
  Age: 64 Year
  Sex: Male

DRUGS (2)
  1. LEUKINE [Suspect]
     Indication: FEBRILE NEUTROPENIA
     Route: 058
     Dates: start: 20101104, end: 20101106
  2. CHEMOTHERAPY [Concomitant]

REACTIONS (2)
  - DYSPNOEA [None]
  - SYNCOPE [None]
